FAERS Safety Report 9265265 (Version 1)
Quarter: 2013Q2

REPORT INFORMATION
  Report Type: Spontaneous
  Country: US (occurrence: US)
  Receive Date: 20130501
  Receipt Date: 20130501
  Transmission Date: 20140414
  Serious: Yes (Other)
  Sender: FDA-Public Use
  Company Number: US-ASTRAZENECA-2013SE28015

PATIENT
  Age: 70 Year
  Sex: Female
  Weight: 86.2 kg

DRUGS (12)
  1. NEXIUM [Suspect]
     Indication: GASTROOESOPHAGEAL REFLUX DISEASE
     Route: 048
     Dates: start: 2000, end: 2012
  2. OMEPRAZOLE [Suspect]
     Indication: GASTROOESOPHAGEAL REFLUX DISEASE
     Route: 048
     Dates: start: 2012
  3. CYMBALTA [Concomitant]
     Indication: ARTHRITIS
  4. CYMBALTA [Concomitant]
     Indication: DEPRESSION
  5. CYCLOBENZAPINE [Concomitant]
     Indication: MUSCLE DISORDER
  6. CYCLOBENZAPINE [Concomitant]
     Indication: FIBROMYALGIA
  7. MAG OXIDE [Concomitant]
     Indication: MINERAL SUPPLEMENTATION
  8. NITROGLYCERINE [Concomitant]
     Indication: MYOCARDIAL INFARCTION
  9. GLIMERIDE [Concomitant]
     Indication: DIABETES MELLITUS
  10. ASPIRIN [Concomitant]
     Indication: CARDIAC DISORDER
  11. TRICOR [Concomitant]
     Indication: BLOOD CHOLESTEROL ABNORMAL
  12. HYDROCODONE [Concomitant]
     Indication: PAIN
     Dosage: 5 325 PRN

REACTIONS (7)
  - Myocardial infarction [Unknown]
  - Fibromyalgia [Unknown]
  - Arthritis [Unknown]
  - Dyspepsia [Unknown]
  - Depression [Unknown]
  - Intentional drug misuse [Unknown]
  - Drug ineffective [Unknown]
